FAERS Safety Report 6369834-0 (Version None)
Quarter: 2009Q3

REPORT INFORMATION
  Report Type: 
  Country: None (occurrence: None)
  Receive Date: 20090923
  Receipt Date: 20071116
  Transmission Date: 20100115
  Serious: No
  Sender: FDA-Public Use
  Company Number: US-ASTRAZENECA-2006UW12059

PATIENT
  Age: 14097 Day
  Sex: Male
  Weight: 136.1 kg

DRUGS (15)
  1. SEROQUEL [Suspect]
     Indication: SCHIZOPHRENIA
     Route: 048
     Dates: start: 19970101
  2. SEROQUEL [Suspect]
     Indication: HALLUCINATION, AUDITORY
     Route: 048
     Dates: start: 19970101
  3. SEROQUEL [Suspect]
     Dosage: 100 TO 400 MG
     Route: 048
     Dates: start: 19990123
  4. SEROQUEL [Suspect]
     Dosage: 100 TO 400 MG
     Route: 048
     Dates: start: 19990123
  5. ZYPREXA [Suspect]
  6. HALDOL [Concomitant]
     Dates: start: 19900101
  7. NAVANE [Concomitant]
     Dates: start: 19900101
  8. RISPERDAL [Concomitant]
     Indication: HALLUCINATION, AUDITORY
     Dates: start: 19940101
  9. RISPERDAL [Concomitant]
     Dosage: 3 TO 4 MG, EVERYDAY
     Dates: start: 19971030
  10. TRILAFON [Concomitant]
     Dates: start: 19890101
  11. TRILAFON [Concomitant]
     Dates: start: 19971030
  12. LITHIUM [Concomitant]
     Dosage: 600 TO 1200 MG
     Dates: start: 19971030
  13. TEGRETOL [Concomitant]
     Dosage: 200 TO 600 MG
     Dates: start: 19971030
  14. ATIVAN [Concomitant]
     Indication: AGITATION
     Dates: start: 19991106
  15. KLONOPIN [Concomitant]
     Dates: start: 20030418

REACTIONS (3)
  - DIABETES MELLITUS [None]
  - METABOLIC SYNDROME [None]
  - TYPE 2 DIABETES MELLITUS [None]
